FAERS Safety Report 9237318 (Version 1)
Quarter: 2013Q2

REPORT INFORMATION
  Report Type: Spontaneous
  Country: US (occurrence: US)
  Receive Date: 20130417
  Receipt Date: 20130417
  Transmission Date: 20140414
  Serious: No
  Sender: FDA-Public Use
  Company Number: US-UPSHER-SMITH LABORATORIES, INC.-13001261

PATIENT
  Sex: Female

DRUGS (1)
  1. KLOR-CON M [Suspect]
     Indication: PRODUCT USED FOR UNKNOWN INDICATION
     Dosage: UNK MEQ, UNK
     Route: 048

REACTIONS (1)
  - Urticaria [Unknown]
